FAERS Safety Report 4940593-9 (Version None)
Quarter: 2006Q1

REPORT INFORMATION
  Report Type: 
  Country: None (occurrence: None)
  Receive Date: 20060201
  Receipt Date: 20051128
  Transmission Date: 20060701
  Serious: No
  Sender: FDA-Public Use
  Company Number: 2005PV004914

PATIENT
  Age: 61 Year
  Sex: Male
  Weight: 111.5849 kg

DRUGS (4)
  1. BYETTA [Suspect]
     Indication: DIABETES MELLITUS NON-INSULIN-DEPENDENT
     Dosage: 5 MCG; BID; SC;  5 MCG; QD; SC
     Route: 058
     Dates: start: 20051010, end: 20051016
  2. BYETTA [Suspect]
     Indication: DIABETES MELLITUS NON-INSULIN-DEPENDENT
     Dosage: 5 MCG; BID; SC;  5 MCG; QD; SC
     Route: 058
     Dates: start: 20051017
  3. GLUCOPHAGE [Concomitant]
  4. HUMULIN [Concomitant]

REACTIONS (3)
  - DECREASED APPETITE [None]
  - THERAPEUTIC RESPONSE UNEXPECTED [None]
  - WEIGHT DECREASED [None]
